FAERS Safety Report 21324918 (Version 1)
Quarter: 2022Q3

REPORT INFORMATION
  Report Type: Spontaneous
  Country: US (occurrence: None)
  Receive Date: 20220912
  Receipt Date: 20220912
  Transmission Date: 20221027
  Serious: Yes (Life-Threatening, Other)
  Sender: FDA-Public Use
  Company Number: None

PATIENT
  Age: 45 Year
  Sex: Female
  Weight: 74.25 kg

DRUGS (3)
  1. VYLEESI [Suspect]
     Active Substance: BREMELANOTIDE ACETATE
     Indication: Libido decreased
     Dosage: OTHER QUANTITY : 1 INJECTION(S);?FREQUENCY : AS NEEDED;?
     Route: 058
     Dates: start: 202208, end: 20220829
  2. WELLBUTRIN [Concomitant]
     Active Substance: BUPROPION HYDROCHLORIDE
  3. ZYRTEC [Concomitant]
     Active Substance: CETIRIZINE HYDROCHLORIDE

REACTIONS (5)
  - Nausea [None]
  - Flushing [None]
  - Hyperhidrosis [None]
  - Muscle spasms [None]
  - Cholelithiasis [None]

NARRATIVE: CASE EVENT DATE: 20220827
